FAERS Safety Report 12774682 (Version 3)
Quarter: 2020Q1

REPORT INFORMATION
  Report Type: Spontaneous
  Country: US (occurrence: US)
  Receive Date: 20160923
  Receipt Date: 20200127
  Transmission Date: 20200409
  Serious: No
  Sender: FDA-Public Use
  Company Number: US-VERTEX PHARMACEUTICALS-2016-005455

PATIENT
  Age: 34 Year
  Sex: Female

DRUGS (1)
  1. KALYDECO [Suspect]
     Active Substance: IVACAFTOR
     Indication: CYSTIC FIBROSIS
     Dosage: 150 MG, BID
     Route: 048
     Dates: start: 20160721, end: 20160818

REACTIONS (3)
  - Diarrhoea [Unknown]
  - Scab [Unknown]
  - Urticaria [Unknown]

NARRATIVE: CASE EVENT DATE: 201607
